FAERS Safety Report 4873748-2 (Version None)
Quarter: 2006Q1

REPORT INFORMATION
  Report Type: 
  Country: None (occurrence: None)
  Receive Date: 20060104
  Receipt Date: 20051220
  Transmission Date: 20060701
  Serious: Yes (Hospitalization)
  Sender: FDA-Public Use
  Company Number: US-2005-011231

PATIENT
  Age: 22 Year
  Sex: Female
  Weight: 102.014 kg

DRUGS (1)
  1. BETASERON [Suspect]
     Indication: RELAPSING-REMITTING MULTIPLE SCLEROSIS
     Dosage: 8 MIU EVERY 2 D HS SUBCUTANEOUS
     Route: 058
     Dates: start: 20040701

REACTIONS (5)
  - CONDITION AGGRAVATED [None]
  - DEPRESSION [None]
  - OVERDOSE [None]
  - STRESS [None]
  - SUICIDE ATTEMPT [None]
